FAERS Safety Report 4399762-1 (Version None)
Quarter: 2004Q3

REPORT INFORMATION
  Report Type: 
  Country: None (occurrence: None)
  Receive Date: 20040714
  Receipt Date: 20030704
  Transmission Date: 20050211
  Serious: Yes (Hospitalization)
  Sender: FDA-Public Use
  Company Number: D01200300872

PATIENT
  Age: 62 Year
  Sex: Male
  Weight: 74.4 kg

DRUGS (14)
  1. CISPLATIN [Suspect]
     Indication: SMALL CELL LUNG CANCER EXTENSIVE STAGE
     Dosage: 80 MG/M2 CONT - INTRAVENOUS NOS
     Route: 042
     Dates: start: 20030617, end: 20030617
  2. CISPLATIN [Suspect]
     Indication: SMALL CELL LUNG CANCER EXTENSIVE STAGE
     Dosage: 120 MG/M2 GIVEN ON DAYS 1, 2 AND 3, IN A 30MINUTE INFUSION - INTRAVENOUS NOS
     Route: 042
     Dates: start: 20030617, end: 20030619
  3. VERAPAMIL [Concomitant]
  4. FRUSEMIDE [Concomitant]
  5. SIMVASTATIN [Concomitant]
  6. DIGOXIN [Concomitant]
  7. BECLOMETHASONE DIPROPIONATE [Concomitant]
  8. ALBUTEROL SULFATE [Concomitant]
  9. WARFARIN SODIUM [Concomitant]
  10. GLYCEROL 2.6% [Concomitant]
  11. PREDNISOLONE [Concomitant]
  12. ACETAMINOPHEN [Concomitant]
  13. SENNA [Concomitant]
  14. AMOXICILLIN AND CLAVULANATE POTASSIUM [Concomitant]

REACTIONS (6)
  - ANOREXIA [None]
  - DYSPNOEA EXACERBATED [None]
  - LEUKOPENIA [None]
  - LOWER RESPIRATORY TRACT INFECTION [None]
  - NAUSEA [None]
  - NEUTROPENIA [None]
